FAERS Safety Report 15431032 (Version 6)
Quarter: 2018Q4

REPORT INFORMATION
  Report Type: Report from Study
  Country: US (occurrence: US)
  Receive Date: 20180926
  Receipt Date: 20181220
  Transmission Date: 20190204
  Serious: Yes (Hospitalization, Other)
  Sender: FDA-Public Use
  Company Number: US-TEVA-2018-US-957649

PATIENT
  Age: 40 Year
  Sex: Male
  Weight: 65 kg

DRUGS (7)
  1. DEPAKOTE [Concomitant]
     Active Substance: DIVALPROEX SODIUM
     Dosage: 1500 MILLIGRAM DAILY;
     Route: 065
     Dates: end: 20180831
  2. SEROQUEL [Concomitant]
     Active Substance: QUETIAPINE FUMARATE
     Dates: start: 20180804, end: 20180917
  3. CLOZAPINE TEVA [Suspect]
     Active Substance: CLOZAPINE
     Indication: SCHIZOPHRENIA
     Dosage: 500 MILLIGRAM DAILY; STARTED AT 25MG TWICE A DAY, TITRATED TO 250MG TWICE A DAY BEFORE DISCONTINUED.
     Route: 048
     Dates: start: 20180815, end: 20180916
  4. DEPAKOTE [Concomitant]
     Active Substance: DIVALPROEX SODIUM
     Dates: end: 20180831
  5. KLONOPIN [Concomitant]
     Active Substance: CLONAZEPAM
  6. LITHIUM. [Concomitant]
     Active Substance: LITHIUM
  7. ZANTAC [Concomitant]
     Active Substance: RANITIDINE HYDROCHLORIDE

REACTIONS (3)
  - Granulocytopenia [Recovered/Resolved]
  - Pneumonia [Recovered/Resolved]
  - Agranulocytosis [Recovered/Resolved]

NARRATIVE: CASE EVENT DATE: 201809
